FAERS Safety Report 7723751-X (Version None)
Quarter: 2011Q3

REPORT INFORMATION
  Report Type: 
  Country: None (occurrence: None)
  Receive Date: 20110901
  Receipt Date: 20110824
  Transmission Date: 20111222
  Serious: Yes (Death)
  Sender: FDA-Public Use
  Company Number: IN-ELI_LILLY_AND_COMPANY-IN201107004877

PATIENT
  Sex: Male

DRUGS (3)
  1. GEMCITABINE [Suspect]
  2. GEMCITABINE [Concomitant]
  3. CARBOPLATIN [Concomitant]

REACTIONS (4)
  - RASH [None]
  - GENERAL PHYSICAL HEALTH DETERIORATION [None]
  - STOMATITIS [None]
  - PRURITUS [None]
